FAERS Safety Report 14367579 (Version 6)
Quarter: 2018Q2

REPORT INFORMATION
  Report Type: Spontaneous
  Country: CA (occurrence: CA)
  Receive Date: 20180109
  Receipt Date: 20180430
  Transmission Date: 20180711
  Serious: Yes (Hospitalization, Other)
  Sender: FDA-Public Use
  Company Number: CA-CELLTRION INC.-2017CA015650

PATIENT

DRUGS (3)
  1. INFLECTRA [Suspect]
     Active Substance: INFLIXIMAB-DYYB
     Dosage: 500 MG, CYCLIC, EVERY 2 WEEKS
     Route: 042
     Dates: start: 20180323, end: 20180406
  2. INFLECTRA [Suspect]
     Active Substance: INFLIXIMAB-DYYB
     Dosage: 500 MG, CYCLIC, EVERY 8 WEEKS
     Route: 042
     Dates: start: 20170919
  3. INFLECTRA [Suspect]
     Active Substance: INFLIXIMAB-DYYB
     Indication: CROHN^S DISEASE
     Dosage: 500 MG, CYCLIC, EVERY 8 WEEKS
     Route: 042
     Dates: start: 20170223

REACTIONS (17)
  - Arteriospasm coronary [Not Recovered/Not Resolved]
  - Pyrexia [Not Recovered/Not Resolved]
  - Pyrexia [Recovered/Resolved]
  - Chills [Unknown]
  - Loss of consciousness [Unknown]
  - Back pain [Recovered/Resolved]
  - Dyspnoea [Recovered/Resolved]
  - Decreased appetite [Not Recovered/Not Resolved]
  - Influenza [Not Recovered/Not Resolved]
  - Muscle spasms [Recovered/Resolved]
  - Diarrhoea [Unknown]
  - Cardiac disorder [Not Recovered/Not Resolved]
  - Drug ineffective [Unknown]
  - Nausea [Recovered/Resolved]
  - Malaise [Not Recovered/Not Resolved]
  - Hot flush [Not Recovered/Not Resolved]
  - Vomiting [Unknown]

NARRATIVE: CASE EVENT DATE: 20180406
